FAERS Safety Report 17638686 (Version 1)
Quarter: 2020Q2

REPORT INFORMATION
  Report Type: Spontaneous
  Country: IT (occurrence: IT)
  Receive Date: 20200407
  Receipt Date: 20200407
  Transmission Date: 20200713
  Serious: Yes (Other)
  Sender: FDA-Public Use
  Company Number: IT-PFIZER INC-2020137850

PATIENT
  Age: 49 Year
  Sex: Male

DRUGS (4)
  1. TEMOZOLOMIDE. [Concomitant]
     Active Substance: TEMOZOLOMIDE
     Indication: CARCINOID TUMOUR PULMONARY
     Dosage: 250 MG, DAILY (5 CONSECUTIVE DAYS IN A 28-DAY TREATMENT CYCLE, 22 MONTHS OF TREATMENT)
     Route: 048
  2. SUNITINIB MALATE. [Suspect]
     Active Substance: SUNITINIB MALATE
     Indication: CARCINOID TUMOUR PULMONARY
     Dosage: 37.5 MG, DAILY (DAILY FOR 2 WEEKS ON/1 WEEK OFF)
     Route: 048
  3. SUNITINIB MALATE. [Suspect]
     Active Substance: SUNITINIB MALATE
     Indication: NEUROENDOCRINE TUMOUR OF THE LUNG
     Dosage: 37.5 MG, DAILY (STANDARD SCHEDULE)
     Route: 048
  4. TEMOZOLOMIDE. [Concomitant]
     Active Substance: TEMOZOLOMIDE
     Indication: NEUROENDOCRINE TUMOUR OF THE LUNG

REACTIONS (6)
  - Condition aggravated [Recovered/Resolved]
  - Product use in unapproved indication [Unknown]
  - Skin ulcer [Recovered/Resolved]
  - Osteomyelitis [Recovered/Resolved]
  - Stomatitis [Recovered/Resolved]
  - Off label use [Unknown]
